FAERS Safety Report 12516894 (Version 4)
Quarter: 2016Q3

REPORT INFORMATION
  Report Type: Report from Study
  Country: CA (occurrence: CA)
  Receive Date: 20160630
  Receipt Date: 20160805
  Transmission Date: 20161109
  Serious: Yes (Other)
  Sender: FDA-Public Use
  Company Number: CA-009507513-1606CAN006628

PATIENT
  Age: 50 Year
  Sex: Female

DRUGS (12)
  1. CARVEDILOL. [Concomitant]
     Active Substance: CARVEDILOL
     Dosage: 1/2 TABLET, BID
  2. ASPIRIN. [Concomitant]
     Active Substance: ASPIRIN
  3. ZEPATIER [Suspect]
     Active Substance: ELBASVIR\GRAZOPREVIR
     Indication: HEPATITIS C
     Dosage: 1 TABLET, QD
     Route: 048
     Dates: start: 20160407, end: 20160610
  4. CLONAZEPAM. [Concomitant]
     Active Substance: CLONAZEPAM
     Dosage: 0.5 MG, PRN
  5. PANTOLOC [Concomitant]
     Active Substance: PANTOPRAZOLE SODIUM
     Dosage: 40 MG, QD
  6. TYLENOL [Concomitant]
     Active Substance: ACETAMINOPHEN
  7. CLOPIDOGREL [Concomitant]
     Active Substance: CLOPIDOGREL BISULFATE
     Dosage: 75 MG, QD
  8. FOSINOPRIL SODIUM. [Concomitant]
     Active Substance: FOSINOPRIL SODIUM
     Dosage: TOTAL DAILY DOSE 20 MG
     Route: 048
  9. OXYCODONE [Concomitant]
     Active Substance: OXYCODONE
     Dosage: TOTAL DAILY DOSE 5 MG
  10. COLACE [Concomitant]
     Active Substance: DOCUSATE SODIUM
     Dosage: 200 MG, QD
  11. ARANESP [Concomitant]
     Active Substance: DARBEPOETIN ALFA
     Dosage: TOTAL DAILY DOSE 60 MG, X14 DAYS
  12. AVAMYS [Concomitant]
     Active Substance: FLUTICASONE FUROATE

REACTIONS (4)
  - Haemolytic anaemia [Unknown]
  - Nasal congestion [Unknown]
  - Alopecia [Unknown]
  - Sinus disorder [Unknown]

NARRATIVE: CASE EVENT DATE: 2016
